FAERS Safety Report 22247588 (Version 1)
Quarter: 2023Q2

REPORT INFORMATION
  Report Type: Report from Study
  Country: CA (occurrence: CA)
  Receive Date: 20230425
  Receipt Date: 20230425
  Transmission Date: 20230722
  Serious: Yes (Death)
  Sender: FDA-Public Use
  Company Number: CA-BAYER-2023A055330

PATIENT
  Age: 88 Year
  Sex: Male

DRUGS (2)
  1. EYLEA [Suspect]
     Active Substance: AFLIBERCEPT
     Indication: Age-related macular degeneration
     Dosage: UNK, SOLUTION FOR INJECTION, STRENGTH: 40MG/ML
     Dates: start: 20190820, end: 20190820
  2. EYLEA [Suspect]
     Active Substance: AFLIBERCEPT
     Dosage: UNK, SOLUTION FOR INJECTION, STRENGTH: 40MG/ML
     Dates: start: 20221214, end: 20221214

REACTIONS (1)
  - Death [Fatal]

NARRATIVE: CASE EVENT DATE: 20230227
